FAERS Safety Report 9376508 (Version 1)
Quarter: 2013Q3

REPORT INFORMATION
  Report Type: Spontaneous
  Country: US (occurrence: US)
  Receive Date: 20130701
  Receipt Date: 20130701
  Transmission Date: 20140515
  Serious: No
  Sender: FDA-Public Use
  Company Number: US-PFIZER INC-2013076348

PATIENT
  Age: 44 Year
  Sex: Male
  Weight: 129 kg

DRUGS (3)
  1. CHANTIX [Suspect]
     Indication: SMOKING CESSATION THERAPY
     Dosage: 0.5MG DAILY
     Dates: start: 2011, end: 2011
  2. CHANTIX [Suspect]
     Dosage: 0.5MG DAILY
     Dates: start: 2012, end: 2012
  3. CHANTIX [Suspect]
     Dosage: UNK
     Dates: start: 201302, end: 201302

REACTIONS (2)
  - Arthritis [Unknown]
  - Inflammation [Unknown]
